FAERS Safety Report 5056228-3 (Version None)
Quarter: 2006Q3

REPORT INFORMATION
  Report Type: 
  Country: None (occurrence: None)
  Receive Date: 20060717
  Receipt Date: 20060707
  Transmission Date: 20061208
  Serious: Yes (Death, Hospitalization, Other)
  Sender: FDA-Public Use
  Company Number: MEDI-0004581

PATIENT
  Age: 69 Year
  Sex: Male

DRUGS (4)
  1. ETHYOL [Suspect]
     Indication: RADIOTHERAPY
     Dosage: INTRAVENOUS
     Route: 042
     Dates: start: 20060324, end: 20060505
  2. RADIATION THERAPY [Concomitant]
  3. INSULIN [Concomitant]
  4. UNKNOWN ANTIBIOTICS [Concomitant]

REACTIONS (20)
  - ABNORMAL BEHAVIOUR [None]
  - ANGIOPATHY [None]
  - BLOOD GLUCOSE INCREASED [None]
  - BLOOD PRESSURE IMMEASURABLE [None]
  - CEREBRAL INFARCTION [None]
  - COMA [None]
  - ESCHERICHIA INFECTION [None]
  - FACIAL PARESIS [None]
  - GENERAL PHYSICAL HEALTH DETERIORATION [None]
  - HEMIPARESIS [None]
  - MUCOSAL HAEMORRHAGE [None]
  - MUCOSAL INFLAMMATION [None]
  - NEUTROPENIA [None]
  - ORAL INTAKE REDUCED [None]
  - PHARYNGOLARYNGEAL PAIN [None]
  - PNEUMONIA ASPIRATION [None]
  - PUPIL FIXED [None]
  - SKIN EXFOLIATION [None]
  - SPUTUM CULTURE POSITIVE [None]
  - THROMBOCYTOPENIA [None]
